FAERS Safety Report 21872651 (Version 1)
Quarter: 2023Q1

REPORT INFORMATION
  Report Type: Spontaneous
  Country: US (occurrence: US)
  Receive Date: 20230117
  Receipt Date: 20230117
  Transmission Date: 20230417
  Serious: Yes (Death, Hospitalization)
  Sender: FDA-Public Use
  Company Number: US-BAYER-2023A002807

PATIENT
  Age: 54 Year
  Sex: Female

DRUGS (10)
  1. ASPIRIN [Suspect]
     Active Substance: ASPIRIN
     Route: 048
  2. ASPIRIN [Suspect]
     Active Substance: ASPIRIN
  3. AMLODIPINE [Suspect]
     Active Substance: AMLODIPINE BESYLATE
  4. BUPROPION [Suspect]
     Active Substance: BUPROPION
  5. ACETAMINOPHEN [Suspect]
     Active Substance: ACETAMINOPHEN
  6. DIPHENHYDRAMINE [Suspect]
     Active Substance: DIPHENHYDRAMINE
  7. TRAMADOL [Suspect]
     Active Substance: TRAMADOL
  8. PHENTERMINE [Suspect]
     Active Substance: PHENTERMINE
  9. ROSUVASTATIN [Suspect]
     Active Substance: ROSUVASTATIN
  10. SULFAMETHOXAZOLE AND TRIMETHOPRIM [Suspect]
     Active Substance: SULFAMETHOXAZOLE\TRIMETHOPRIM

REACTIONS (1)
  - Toxicity to various agents [Fatal]
